FAERS Safety Report 8970372 (Version 1)
Quarter: 2012Q4

REPORT INFORMATION
  Report Type: 
  Country: US (occurrence: US)
  Receive Date: 20121218
  Receipt Date: 20121218
  Transmission Date: 20130627
  Serious: No
  Sender: FDA-Public Use
  Company Number: US-BRISTOL-MYERS SQUIBB COMPANY-17052663

PATIENT
  Age: 9 Year
  Sex: Female

DRUGS (6)
  1. ABILIFY [Suspect]
     Indication: ATTENTION DEFICIT/HYPERACTIVITY DISORDER
  2. ABILIFY [Suspect]
     Indication: BIPOLAR DISORDER
  3. OLANZAPINE [Suspect]
     Indication: BIPOLAR DISORDER
  4. OLANZAPINE [Suspect]
     Indication: ATTENTION DEFICIT/HYPERACTIVITY DISORDER
  5. FOCALIN [Suspect]
     Indication: BIPOLAR DISORDER
  6. FOCALIN [Suspect]
     Indication: ATTENTION DEFICIT/HYPERACTIVITY DISORDER

REACTIONS (2)
  - Irritability [Unknown]
  - Abnormal behaviour [Unknown]
